FAERS Safety Report 9179163 (Version 1)
Quarter: 2012Q4

REPORT INFORMATION
  Report Type: 
  Country: US (occurrence: US)
  Receive Date: 20121029
  Receipt Date: 20121029
  Transmission Date: 20130627
  Serious: No
  Sender: FDA-Public Use
  Company Number: US-AMGEN-USASP2012055235

PATIENT
  Age: 47 Year
  Sex: Male
  Weight: 67.57 kg

DRUGS (4)
  1. ENBREL [Suspect]
     Indication: PSORIASIS
     Dosage: 50 mg, 2 times/wk
     Route: 058
  2. VICODIN [Concomitant]
     Dosage: 5-500 mg
     Route: 048
  3. LANTUS [Concomitant]
     Dosage: 100/mL
     Route: 058
  4. VITAMIN B 12 [Concomitant]
     Dosage: 100 mug, UNK
     Route: 048

REACTIONS (1)
  - Drug effect decreased [Unknown]
